FAERS Safety Report 7216955-6 (Version None)
Quarter: 2011Q1

REPORT INFORMATION
  Report Type: 
  Country: None (occurrence: None)
  Receive Date: 20110110
  Receipt Date: 20101123
  Transmission Date: 20110831
  Serious: Yes (Other)
  Sender: FDA-Public Use
  Company Number: US-BAYER-201029053NA

PATIENT
  Sex: Female
  Weight: 76.19 kg

DRUGS (6)
  1. YASMIN [Suspect]
     Indication: PRODUCT USED FOR UNKNOWN INDICATION
     Dosage: UNK UNK, UNK
     Route: 048
     Dates: start: 20040101, end: 20090101
  2. IMITREX [Concomitant]
     Indication: MIGRAINE
  3. MINI-PILL [Concomitant]
     Dosage: UNK
     Dates: start: 20070501, end: 20070701
  4. YAZ [Suspect]
     Indication: PREMENSTRUAL SYNDROME
  5. PRENATAL VITAMINS [Concomitant]
     Dosage: UNK
     Dates: start: 20070101
  6. ANTIBIOTICS [Concomitant]

REACTIONS (7)
  - ABDOMINAL PAIN UPPER [None]
  - ABDOMINAL TENDERNESS [None]
  - CHOLECYSTITIS CHRONIC [None]
  - CHOLELITHIASIS [None]
  - GALLBLADDER CHOLESTEROLOSIS [None]
  - ABDOMINAL HERNIA [None]
  - ABDOMINAL PAIN [None]
